FAERS Safety Report 7904156-5 (Version None)
Quarter: 2011Q4

REPORT INFORMATION
  Report Type: 
  Country: None (occurrence: None)
  Receive Date: 20111109
  Receipt Date: 20111031
  Transmission Date: 20120403
  Serious: Yes (Other)
  Sender: FDA-Public Use
  Company Number: US-PFIZER INC-2011264661

PATIENT
  Sex: Female
  Weight: 83.9 kg

DRUGS (14)
  1. PLAVIX [Concomitant]
     Dosage: 75 MG, 1X/DAY
  2. CARVEDILOL [Concomitant]
     Dosage: UNK, 2X/DAY
  3. ASPIRIN [Concomitant]
     Dosage: UNK
  4. CARVEDILOL [Concomitant]
     Dosage: 6.25 MG, 2X/DAY
  5. ENALAPRIL [Concomitant]
     Dosage: 2.5 MG, 2X/DAY
  6. SIMVASTATIN [Concomitant]
     Dosage: UNK
  7. ENALAPRIL [Concomitant]
     Dosage: UNK, 2X/DAY
  8. GLIPIZIDE [Suspect]
     Dosage: UNK
     Route: 048
     Dates: start: 20090101, end: 20111024
  9. LASIX [Concomitant]
     Dosage: 40 MG, 2X/DAY
  10. SIMVASTATIN [Concomitant]
     Dosage: 20 MG, 1X/DAY
  11. METFORMIN [Concomitant]
     Dosage: UNK
  12. GLIPIZIDE [Suspect]
     Indication: DIABETES MELLITUS
     Dosage: 2.5 MG, 2X/DAY
     Route: 048
     Dates: start: 20081201, end: 20090101
  13. PLAVIX [Concomitant]
     Dosage: 75 MG, UNK
  14. LASIX [Concomitant]
     Dosage: UNK, 2X/DAY

REACTIONS (3)
  - WOUND COMPLICATION [None]
  - OPEN WOUND [None]
  - BLOOD GLUCOSE ABNORMAL [None]
